FAERS Safety Report 6099969-1 (Version None)
Quarter: 2009Q1

REPORT INFORMATION
  Report Type: 
  Country: None (occurrence: None)
  Receive Date: 20090303
  Receipt Date: 20090223
  Transmission Date: 20090719
  Serious: Yes (Other)
  Sender: FDA-Public Use
  Company Number: PHEH2009US01385

PATIENT
  Sex: Female

DRUGS (27)
  1. ZOMETA [Suspect]
     Indication: METASTASES TO BONE
     Dosage: 4 MG, QMO
     Route: 042
     Dates: start: 20060526
  2. ZOMETA [Suspect]
     Dosage: 3.5 MG, QMO
     Route: 042
     Dates: start: 20070613, end: 20090113
  3. FASLODEX [Concomitant]
     Indication: BREAST CANCER
     Dosage: 250 MG, QMO
  4. FEMARA [Concomitant]
  5. EFFEXOR [Concomitant]
     Dosage: 75 MG, QD
  6. ATENOLOL [Concomitant]
     Dosage: 50/25MG, QD
  7. TAXOTERE [Concomitant]
     Dosage: 32 MG/M2 WEEKLY 6 OF 8 WEEKS
     Dates: start: 20080624, end: 20080814
  8. DEXAMETHASONE [Concomitant]
     Dosage: 8 MG, BID
     Dates: start: 20080625, end: 20080813
  9. DEXAMETHASONE [Concomitant]
     Dosage: 10 MG, QW
     Route: 042
     Dates: start: 20080625, end: 20080813
  10. DURAGESIC-100 [Concomitant]
     Dosage: 25 UG, Q72H
     Route: 062
     Dates: start: 20080506, end: 20080526
  11. DURAGESIC-100 [Concomitant]
     Dosage: 50 UG, Q72H
     Route: 062
     Dates: start: 20080527
  12. ARIMIDEX [Concomitant]
     Indication: BREAST CANCER
     Dosage: 1 MG, QD
     Route: 048
     Dates: start: 20060501, end: 20080301
  13. INFLUENZA VACCINE [Concomitant]
     Dosage: UNK
     Dates: start: 20071205
  14. ARANESP [Concomitant]
     Dosage: UNK
     Dates: start: 20080306
  15. SODIUM CHLORIDE [Concomitant]
     Dosage: UNK
     Dates: start: 20080829
  16. MIRALAX [Concomitant]
     Dosage: 17 G, 1-2 DOSES PER DAY
     Dates: start: 20080710
  17. FIBERCON [Concomitant]
     Dosage: 625 MG, QD
  18. MEGACE [Concomitant]
     Dosage: 10 ML, QD
     Dates: start: 20090128
  19. MACROBID [Concomitant]
     Dosage: 100 MG, BID
     Dates: start: 20081121
  20. VICODIN [Concomitant]
     Dosage: 500 MG, PRN
     Dates: start: 20080213, end: 20080219
  21. VICODIN [Concomitant]
     Dosage: 1000 MG, Q4H PRN
     Dates: start: 20080219
  22. PRILOSEC [Concomitant]
     Dosage: 20 MG, QD
  23. POTASSIUM CHLORIDE [Concomitant]
     Dosage: 20 MEQ, QD
     Route: 048
     Dates: start: 20080409
  24. NORCO [Concomitant]
     Indication: PAIN
     Dosage: 10/325, Q4-6HR PRN
     Route: 048
     Dates: start: 20080229
  25. PROMETHAZINE [Concomitant]
     Dosage: 25 MG, Q4-6 PRN
  26. SENOKOT [Concomitant]
     Dosage: UNK
     Dates: start: 20080221, end: 20080710
  27. PENICILLIN V POTASSIUM [Concomitant]
     Dosage: 250 MG, Q8H
     Route: 048
     Dates: start: 20080609

REACTIONS (7)
  - ANAEMIA [None]
  - BONE DISORDER [None]
  - ERYTHEMA [None]
  - INFECTION [None]
  - OSTEONECROSIS [None]
  - PAIN [None]
  - STENT PLACEMENT [None]
